FAERS Safety Report 19019652 (Version 1)
Quarter: 2021Q1

REPORT INFORMATION
  Report Type: Other
  Country: NZ (occurrence: NZ)
  Receive Date: 20210316
  Receipt Date: 20210316
  Transmission Date: 20210420
  Serious: Yes (Other)
  Sender: FDA-Public Use
  Company Number: NZ-VALIDUS PHARMACEUTICALS LLC-NZ-2021VAL000604

PATIENT

DRUGS (5)
  1. TRANEXAMIC ACID. [Concomitant]
     Active Substance: TRANEXAMIC ACID
     Indication: PRODUCT USED FOR UNKNOWN INDICATION
     Dosage: UNK
  2. RANITIDINE. [Concomitant]
     Active Substance: RANITIDINE
     Indication: PRODUCT USED FOR UNKNOWN INDICATION
     Dosage: UNK
  3. FUROSEMIDE. [Suspect]
     Active Substance: FUROSEMIDE
     Indication: PRODUCT USED FOR UNKNOWN INDICATION
     Dosage: UNK
     Route: 065
  4. BENDROFLUMETHIAZIDE [Suspect]
     Active Substance: BENDROFLUMETHIAZIDE
     Indication: PRODUCT USED FOR UNKNOWN INDICATION
     Dosage: UNK
     Route: 065
  5. CITALOPRAM [Suspect]
     Active Substance: CITALOPRAM HYDROBROMIDE
     Indication: PRODUCT USED FOR UNKNOWN INDICATION
     Dosage: UNK
     Route: 065

REACTIONS (5)
  - Torsade de pointes [Unknown]
  - Hypomagnesaemia [Unknown]
  - Drug interaction [Unknown]
  - Electrocardiogram QT prolonged [Unknown]
  - Hypokalaemia [Unknown]
